FAERS Safety Report 7263712-0 (Version None)
Quarter: 2011Q1

REPORT INFORMATION
  Report Type: 
  Country: None (occurrence: None)
  Receive Date: 20110130
  Receipt Date: 20101203
  Transmission Date: 20110831
  Serious: No
  Sender: FDA-Public Use
  Company Number: US-ABBOTT-10P-163-0689896-00

PATIENT
  Sex: Female
  Weight: 88.076 kg

DRUGS (9)
  1. HUMIRA [Suspect]
  2. CALCIUM + VITAMIN D [Concomitant]
     Indication: VITAMIN SUPPLEMENTATION
  3. CINNAMON [Concomitant]
     Indication: PRODUCT USED FOR UNKNOWN INDICATION
  4. ASPIRIN [Concomitant]
     Indication: CARDIOVASCULAR EVENT PROPHYLAXIS
  5. AVAPRO [Concomitant]
     Indication: HYPERTENSION
  6. NEXIUM [Concomitant]
     Indication: GASTROOESOPHAGEAL REFLUX DISEASE
  7. HUMIRA [Suspect]
     Indication: PSORIASIS
     Dates: start: 20100301, end: 20100801
  8. VITAMIN B COM.W/VIT.C +FOLIC ACID [Concomitant]
     Indication: VITAMIN SUPPLEMENTATION
     Dosage: FOUR TABLETS DAILY
  9. SIMVASTATIN [Concomitant]
     Indication: BLOOD CHOLESTEROL INCREASED

REACTIONS (8)
  - PSORIASIS [None]
  - WOUND HAEMORRHAGE [None]
  - INJECTION SITE HAEMORRHAGE [None]
  - PRURITUS [None]
  - DEVICE MALFUNCTION [None]
  - SKIN EXFOLIATION [None]
  - SCAB [None]
  - DRUG DOSE OMISSION [None]
